FAERS Safety Report 25213461 (Version 2)
Quarter: 2025Q2

REPORT INFORMATION
  Report Type: Report from Study
  Country: US (occurrence: US)
  Receive Date: 20250418
  Receipt Date: 20250501
  Transmission Date: 20250716
  Serious: Yes (Other)
  Sender: ABBVIE
  Company Number: US-ABBVIE-6215887

PATIENT
  Sex: Female

DRUGS (1)
  1. HUMIRA [Suspect]
     Active Substance: ADALIMUMAB
     Indication: Psoriatic arthropathy
     Route: 058
     Dates: start: 20160513, end: 20230309

REACTIONS (8)
  - Recurrent cancer [Unknown]
  - Sleep apnoea syndrome [Unknown]
  - Adrenal gland injury [Recovered/Resolved with Sequelae]
  - Hypertonic bladder [Unknown]
  - Malaise [Recovered/Resolved with Sequelae]
  - Illness [Unknown]
  - Injection site pain [Unknown]
  - Ligament sprain [Unknown]
